FAERS Safety Report 4423483-X (Version None)
Quarter: 2004Q3

REPORT INFORMATION
  Report Type: 
  Country: None (occurrence: None)
  Receive Date: 20040713
  Receipt Date: 20040405
  Transmission Date: 20050211
  Serious: No
  Sender: FDA-Public Use
  Company Number: PHEH2004US03893

PATIENT
  Age: 83 Year
  Sex: Male

DRUGS (7)
  1. ELIDEL [Suspect]
     Indication: ECZEMA
     Dosage: UNK, ONCE/SINGLE; TOPICAL
     Route: 061
     Dates: start: 20040402, end: 20040402
  2. BEXTRA [Concomitant]
  3. COUMADIN [Concomitant]
  4. UNK [Concomitant]
  5. LEVOXYL [Concomitant]
  6. DIGITEK [Concomitant]
  7. TOPROL-XL [Concomitant]

REACTIONS (1)
  - FLUSHING [None]
